FAERS Safety Report 14456822 (Version 2)
Quarter: 2018Q1

REPORT INFORMATION
  Report Type: Spontaneous
  Country: US (occurrence: US)
  Receive Date: 20180130
  Receipt Date: 20180207
  Transmission Date: 20180509
  Serious: No
  Sender: FDA-Public Use
  Company Number: US-HORIZON-DUE-0019-2018

PATIENT
  Age: 24 Year
  Sex: Female

DRUGS (1)
  1. DUEXIS [Suspect]
     Active Substance: FAMOTIDINE\IBUPROFEN
     Indication: TENDONITIS
     Dosage: 1 TABLET EVERY MORNING
     Dates: start: 20180118, end: 20180119

REACTIONS (6)
  - Cold sweat [Unknown]
  - Off label use [Unknown]
  - Off label use [Unknown]
  - Back pain [Recovered/Resolved]
  - Chest pain [Recovered/Resolved]
  - Tremor [Unknown]

NARRATIVE: CASE EVENT DATE: 20180118
